FAERS Safety Report 5509205-X (Version None)
Quarter: 2007Q4

REPORT INFORMATION
  Report Type: 
  Country: None (occurrence: None)
  Receive Date: 20071031
  Receipt Date: 20070619
  Transmission Date: 20080405
  Serious: No
  Sender: FDA-Public Use
  Company Number: 2007PV033045

PATIENT
  Sex: Male

DRUGS (3)
  1. SYMLIN [Suspect]
     Indication: TYPE 2 DIABETES MELLITUS
     Dosage: 75 MCG;TID;SC  : 60 MCG;TID;SC
     Route: 058
     Dates: start: 20070613, end: 20070601
  2. SYMLIN [Suspect]
     Indication: TYPE 2 DIABETES MELLITUS
     Dosage: 75 MCG;TID;SC  : 60 MCG;TID;SC
     Route: 058
     Dates: start: 20070601
  3. FAST ACTING INSULIN [Concomitant]

REACTIONS (2)
  - HEADACHE [None]
  - NAUSEA [None]
